FAERS Safety Report 8268802-1 (Version None)
Quarter: 2012Q2

REPORT INFORMATION
  Report Type: 
  Country: None (occurrence: None)
  Receive Date: 20120409
  Receipt Date: 20120409
  Transmission Date: 20120825
  Serious: Yes (Hospitalization)
  Sender: FDA-Public Use
  Company Number: None

PATIENT
  Age: 86 Year
  Sex: Male
  Weight: 100 kg

DRUGS (8)
  1. DABIGATRAN [Concomitant]
     Indication: ATRIAL FIBRILLATION
     Dosage: 150 MG
     Route: 048
     Dates: start: 20111201, end: 20120320
  2. CITALOPRAM HYDROBROMIDE [Concomitant]
     Route: 048
  3. CLOPIDOGREL [Concomitant]
     Route: 048
  4. PROCHLORPERAZINE [Concomitant]
     Route: 048
  5. OXYCODONE HCL [Concomitant]
     Route: 048
  6. CLOPIDOGREL [Suspect]
     Indication: PRODUCT USED FOR UNKNOWN INDICATION
     Dosage: 75 MG
     Route: 048
  7. DILTIAZEM HCL [Concomitant]
     Route: 048
  8. LEVOTHYROXINE SODIUM [Concomitant]
     Route: 048

REACTIONS (11)
  - FALL [None]
  - HYPOPHAGIA [None]
  - AZOTAEMIA [None]
  - HYPOVOLAEMIA [None]
  - DELIRIUM [None]
  - LOSS OF CONSCIOUSNESS [None]
  - RENAL TUBULAR NECROSIS [None]
  - CONFUSIONAL STATE [None]
  - DEHYDRATION [None]
  - HEADACHE [None]
  - SUBARACHNOID HAEMORRHAGE [None]
